FAERS Safety Report 6537012-8 (Version None)
Quarter: 2010Q1

REPORT INFORMATION
  Report Type: 
  Country: None (occurrence: None)
  Receive Date: 20100107
  Receipt Date: 20091022
  Transmission Date: 20100710
  Serious: Yes (Other)
  Sender: FDA-Public Use
  Company Number: 1000011129

PATIENT
  Age: 46 Year
  Sex: Female
  Weight: 37 kg

DRUGS (1)
  1. LEXAPRO [Suspect]
     Indication: DEPRESSION
     Dosage: (10 MG), ORAL
     Route: 048
     Dates: start: 20090501, end: 20091001

REACTIONS (16)
  - AMNESIA [None]
  - DIARRHOEA [None]
  - DIZZINESS [None]
  - DRY EYE [None]
  - EAR PAIN [None]
  - FATIGUE [None]
  - HEADACHE [None]
  - HYPERHIDROSIS [None]
  - HYPOTENSION [None]
  - MYALGIA [None]
  - NECK PAIN [None]
  - OROPHARYNGEAL PAIN [None]
  - SOMNOLENCE [None]
  - URINE OUTPUT INCREASED [None]
  - VISION BLURRED [None]
  - WEIGHT DECREASED [None]
